FAERS Safety Report 16650676 (Version 1)
Quarter: 2019Q3

REPORT INFORMATION
  Report Type: Spontaneous
  Country: GB (occurrence: GB)
  Receive Date: 20190731
  Receipt Date: 20190731
  Transmission Date: 20191004
  Serious: Yes (Death, Hospitalization)
  Sender: FDA-Public Use
  Company Number: GB-TEVA-05-02-0201

PATIENT
  Sex: Male
  Weight: 80 kg

DRUGS (2)
  1. OMEPRAZOLE. [Suspect]
     Active Substance: OMEPRAZOLE
     Indication: DYSPEPSIA
     Dosage: UNKNOWN
     Route: 048
     Dates: start: 20050126, end: 20050129
  2. METFORMIN [Suspect]
     Active Substance: METFORMIN HYDROCHLORIDE
     Indication: DIABETES MELLITUS
     Dosage: UNKNOWN?500MG 625MG, 750MG, 850MG, 1000MG (GOLDLINE)
     Route: 048
     Dates: end: 20050129

REACTIONS (4)
  - Lactic acidosis [Fatal]
  - Hepatic failure [Fatal]
  - Hypotension [Not Recovered/Not Resolved]
  - Coagulopathy [Unknown]

NARRATIVE: CASE EVENT DATE: 20050129
